FAERS Safety Report 12977788 (Version 1)
Quarter: 2016Q4

REPORT INFORMATION
  Report Type: Spontaneous
  Country: US (occurrence: US)
  Receive Date: 20161128
  Receipt Date: 20161128
  Transmission Date: 20170207
  Serious: No
  Sender: FDA-Public Use
  Company Number: US-ASTRAZENECA-2016SF03086

PATIENT
  Age: 73 Year
  Sex: Female
  Weight: 74.8 kg

DRUGS (3)
  1. ASPIRIN. [Concomitant]
     Active Substance: ASPIRIN
     Indication: DRUG THERAPY
     Dates: start: 201411
  2. OTHER MEDICATIONS [Concomitant]
     Active Substance: UNSPECIFIED INGREDIENT
  3. BRILINTA [Suspect]
     Active Substance: TICAGRELOR
     Indication: STENT PLACEMENT
     Route: 048
     Dates: start: 201411

REACTIONS (5)
  - Fatigue [Unknown]
  - Irritable bowel syndrome [Unknown]
  - Contusion [Unknown]
  - Haemorrhagic diathesis [Unknown]
  - Off label use [Unknown]
